FAERS Safety Report 11746636 (Version 1)
Quarter: 2015Q4

REPORT INFORMATION
  Report Type: Spontaneous
  Country: US (occurrence: None)
  Receive Date: 20151116
  Receipt Date: 20151116
  Transmission Date: 20160304
  Serious: No
  Sender: FDA-Public Use
  Company Number: None

PATIENT
  Sex: Female

DRUGS (1)
  1. FANAPT [Suspect]
     Active Substance: ILOPERIDONE
     Indication: PRODUCT USED FOR UNKNOWN INDICATION

REACTIONS (6)
  - Tardive dyskinesia [None]
  - Arthralgia [None]
  - Nasal dryness [None]
  - Anxiety [None]
  - Myalgia [None]
  - Restlessness [None]

NARRATIVE: CASE EVENT DATE: 20141212
